FAERS Safety Report 5981738-1 (Version None)
Quarter: 2008Q4

REPORT INFORMATION
  Report Type: 
  Country: None (occurrence: None)
  Receive Date: 20081205
  Receipt Date: 20081114
  Transmission Date: 20090506
  Serious: No
  Sender: FDA-Public Use
  Company Number: US-B.I. PHARMACEUTICALS,INC./RIDGEFIELD-2008-BP-15943BP

PATIENT
  Sex: Female
  Weight: 71 kg

DRUGS (10)
  1. AGGRENOX [Suspect]
     Indication: TRANSIENT ISCHAEMIC ATTACK
     Dates: start: 20080310, end: 20080519
  2. VITAMIN B-12 [Concomitant]
  3. CALCIUM [Concomitant]
  4. GLUCOSAMINE [Concomitant]
  5. ASCORBIC ACID [Concomitant]
  6. FOSAMAX PLUS D [Concomitant]
  7. BENICAR [Concomitant]
     Dosage: 20MG
  8. LIPITOR [Concomitant]
     Dosage: 20MG
     Dates: end: 20080519
  9. LIPITOR [Concomitant]
     Dates: start: 20080707
  10. ASPIRIN [Concomitant]
     Dosage: 81MG

REACTIONS (6)
  - ABDOMINAL DISCOMFORT [None]
  - ALANINE AMINOTRANSFERASE ABNORMAL [None]
  - ASPARTATE AMINOTRANSFERASE ABNORMAL [None]
  - FATIGUE [None]
  - HEPATIC ENZYME INCREASED [None]
  - NAUSEA [None]
